FAERS Safety Report 9731269 (Version 2)
Quarter: 2013Q4

REPORT INFORMATION
  Report Type: Spontaneous
  Country: US (occurrence: US)
  Receive Date: 20131203
  Receipt Date: 20131210
  Transmission Date: 20140711
  Serious: Yes (Other)
  Sender: FDA-Public Use
  Company Number: US-BAYER-2013-145562

PATIENT
  Age: 24 Year
  Sex: Female

DRUGS (1)
  1. MIRENA [Suspect]
     Indication: CONTRACEPTION
     Dosage: 20 ?G/D, CONT
     Route: 015
     Dates: start: 20130810, end: 20130924

REACTIONS (13)
  - Medical device pain [Recovered/Resolved]
  - Medical device discomfort [None]
  - Dyspareunia [None]
  - Activities of daily living impaired [None]
  - Post procedural haemorrhage [None]
  - Vulvovaginal discomfort [None]
  - Vaginal inflammation [None]
  - Uterine inflammation [Recovering/Resolving]
  - Ovarian cyst [None]
  - Adnexa uteri pain [None]
  - Ovarian cyst ruptured [None]
  - Swelling [None]
  - Device dislocation [None]
